FAERS Safety Report 5319633-3 (Version None)
Quarter: 2007Q2

REPORT INFORMATION
  Report Type: 
  Country: None (occurrence: None)
  Receive Date: 20070503
  Receipt Date: 20070423
  Transmission Date: 20071010
  Serious: Yes (Other)
  Sender: FDA-Public Use
  Company Number: GXKR2007GB03730

PATIENT
  Age: 77 Year
  Sex: Male
  Weight: 90 kg

DRUGS (4)
  1. TRAMADOL HCL [Suspect]
     Indication: ARTHRALGIA
     Dosage: 300 MG, ORAL
     Route: 048
  2. DICLOFENAC (DICLOFENAC) [Concomitant]
  3. OMEPRAZOLE [Concomitant]
  4. PREDNISOLONE [Concomitant]

REACTIONS (1)
  - MUSCULAR WEAKNESS [None]
